FAERS Safety Report 15221142 (Version 2)
Quarter: 2018Q4

REPORT INFORMATION
  Report Type: Spontaneous
  Country: PT (occurrence: PT)
  Receive Date: 20180731
  Receipt Date: 20180818
  Transmission Date: 20190204
  Serious: Yes (Life-Threatening, Hospitalization, Other)
  Sender: FDA-Public Use
  Company Number: PT-AUROBINDO-AUR-APL-2018-038679

PATIENT
  Age: 48 Year
  Sex: Female
  Weight: 77 kg

DRUGS (12)
  1. BUPROPION. [Interacting]
     Active Substance: BUPROPION
     Indication: WEIGHT DECREASED
     Dosage: 100 MG B.I.D.
     Route: 048
     Dates: start: 201708, end: 201804
  2. FUROSEMIDE. [Interacting]
     Active Substance: FUROSEMIDE
     Indication: WEIGHT DECREASED
     Dosage: 40 MG B.I.D.
     Route: 048
     Dates: start: 201708, end: 201804
  3. FLECAINIDE [Concomitant]
     Active Substance: FLECAINIDE
     Indication: VENTRICULAR EXTRASYSTOLES
     Dosage: 100 MILLIGRAM
     Route: 048
     Dates: start: 201605
  4. PICOLINATO DE CROMO [Interacting]
     Active Substance: CHROMIUM PICOLINATE
     Indication: WEIGHT DECREASED
     Dosage: 200 MCG BID
     Route: 048
     Dates: start: 201708, end: 201804
  5. CASCARA [Suspect]
     Active Substance: RHAMNUS PURSHIANA BARK EXTRACT
     Indication: WEIGHT DECREASED
     Dosage: 2 DOSAGE FORM, DAILY
     Route: 048
     Dates: start: 201708, end: 201804
  6. CHLORDIAZEPOXIDE. [Interacting]
     Active Substance: CHLORDIAZEPOXIDE
     Indication: WEIGHT DECREASED
     Dosage: 10MG
     Route: 048
     Dates: start: 201708, end: 201804
  7. TOPIRAMATE. [Interacting]
     Active Substance: TOPIRAMATE
     Indication: WEIGHT DECREASED
     Dosage: 10 MG BID
     Route: 048
     Dates: start: 201708, end: 201804
  8. ORLISTAT CAPSULES [Suspect]
     Active Substance: ORLISTAT
     Indication: WEIGHT DECREASED
     Dosage: 50 MG B.I.D.
     Route: 048
     Dates: start: 201708, end: 201804
  9. PHENOLPHTHALEIN [Interacting]
     Active Substance: PHENOLPHTHALEIN
     Indication: WEIGHT DECREASED
     Dosage: 80 MG B.I.D.
     Route: 048
     Dates: start: 201708, end: 201804
  10. MINULET [Interacting]
     Active Substance: ETHINYL ESTRADIOL\GESTODENE
     Indication: CONTRACEPTION
     Dosage: 1 DOSAGE FORM, ONCE A DAY
     Route: 048
     Dates: start: 201711, end: 201804
  11. METFORMIN [Interacting]
     Active Substance: METFORMIN HYDROCHLORIDE
     Indication: WEIGHT DECREASED
     Dosage: 200MG
     Route: 048
     Dates: start: 201708, end: 201804
  12. CENTELLA ASIATICA [Interacting]
     Active Substance: CENTELLA ASIATICA
     Indication: WEIGHT DECREASED
     Dosage: 200 MG BID
     Route: 048
     Dates: start: 201708, end: 201804

REACTIONS (6)
  - Cerebral venous thrombosis [Recovering/Resolving]
  - Headache [Recovering/Resolving]
  - Product use in unapproved indication [Unknown]
  - Thalamic infarction [Not Recovered/Not Resolved]
  - Bradyphrenia [Recovering/Resolving]
  - Fatigue [Recovering/Resolving]

NARRATIVE: CASE EVENT DATE: 201708
